FAERS Safety Report 8223451-6 (Version None)
Quarter: 2012Q1

REPORT INFORMATION
  Report Type: 
  Country: None (occurrence: None)
  Receive Date: 20120321
  Receipt Date: 20120314
  Transmission Date: 20120608
  Serious: Yes (Hospitalization)
  Sender: FDA-Public Use
  Company Number: US-BAYER-2011-041061

PATIENT
  Age: 48 Year
  Sex: Female
  Weight: 92.971 kg

DRUGS (12)
  1. YASMIN [Suspect]
     Indication: PREMENSTRUAL SYNDROME
     Dosage: UNK
     Route: 048
     Dates: start: 20050901, end: 20060801
  2. ASPIRIN [Concomitant]
  3. ASCORBIC ACID [Concomitant]
  4. TYLENOL [Concomitant]
  5. SYNTHROID [Concomitant]
     Dosage: UNK
     Dates: start: 20110201
  6. SYNTHROID [Concomitant]
     Dosage: UNK
     Dates: start: 20040801, end: 20110201
  7. LEVOTHYROXINE SODIUM [Concomitant]
     Indication: HYPOTHYROIDISM
     Dosage: UNK
     Dates: start: 19991001, end: 20040301
  8. LEVOTHYROXINE SODIUM [Concomitant]
     Dosage: UNK
     Dates: start: 20110201
  9. LEVOTHYROXINE SODIUM [Concomitant]
     Dosage: UNK
     Dates: start: 20040801, end: 20110201
  10. YASMIN [Suspect]
  11. YASMIN [Suspect]
     Indication: ACNE
  12. SYNTHROID [Concomitant]
     Indication: HYPOTHYROIDISM
     Dosage: UNK
     Dates: start: 19991001, end: 20040301

REACTIONS (10)
  - PAIN [None]
  - ASTHENIA [None]
  - EMOTIONAL DISTRESS [None]
  - PULMONARY EMBOLISM [None]
  - ANXIETY [None]
  - DYSPNOEA [None]
  - PAIN IN EXTREMITY [None]
  - DEEP VEIN THROMBOSIS [None]
  - INJURY [None]
  - OEDEMA PERIPHERAL [None]
